FAERS Safety Report 9135923 (Version 2)
Quarter: 2014Q1

REPORT INFORMATION
  Report Type: Spontaneous
  Country: US (occurrence: US)
  Receive Date: 20130219
  Receipt Date: 20140213
  Transmission Date: 20141002
  Serious: No
  Sender: FDA-Public Use
  Company Number: US-BRISTOL-MYERS SQUIBB COMPANY-17129628

PATIENT
  Age: 20 Year
  Sex: Female
  Weight: 43.54 kg

DRUGS (2)
  1. ABATACEPT SUBQ INJECTION 125MG/ML [Suspect]
     Indication: RHEUMATOID ARTHRITIS
     Dosage: 1DF:125MG/ML?100MGSQ
     Route: 058
     Dates: start: 20121111
  2. RELAFEN [Concomitant]

REACTIONS (4)
  - Chills [Unknown]
  - Injection site pain [Recovered/Resolved]
  - Musculoskeletal stiffness [Unknown]
  - Dizziness [Unknown]
